FAERS Safety Report 9416898 (Version 1)
Quarter: 2013Q3

REPORT INFORMATION
  Report Type: Spontaneous
  Country: US (occurrence: None)
  Receive Date: 20130722
  Receipt Date: 20130722
  Transmission Date: 20140515
  Serious: Yes (Hospitalization)
  Sender: FDA-Public Use
  Company Number: UCM201307-000042

PATIENT
  Age: 34 Year
  Sex: Male

DRUGS (6)
  1. DIVALPROEX SODIUM [Suspect]
  2. BENZTROPINE [Suspect]
  3. CITALOPRAM (CITALOPRAM) (CITALOPRAM) [Suspect]
  4. CHLORPROMAZINE [Suspect]
  5. HALOPERIDOL (HALOPERIDOL) (HALOPERIDOL) [Suspect]
  6. HYDROXYZINE [Suspect]

REACTIONS (2)
  - Loss of consciousness [None]
  - Neuroleptic malignant syndrome [None]
